FAERS Safety Report 18346250 (Version 1)
Quarter: 2020Q4

REPORT INFORMATION
  Report Type: Spontaneous
  Country: CA (occurrence: CA)
  Receive Date: 20201005
  Receipt Date: 20201005
  Transmission Date: 20210114
  Serious: Yes (Other)
  Sender: FDA-Public Use
  Company Number: CA-JNJFOC-20200948219

PATIENT
  Age: 31 Year
  Sex: Male

DRUGS (4)
  1. PENTASA [Concomitant]
     Active Substance: MESALAMINE
     Route: 048
  2. ASACOL [Concomitant]
     Active Substance: MESALAMINE
     Route: 048
  3. INFLIXIMAB, RECOMBINANT [Suspect]
     Active Substance: INFLIXIMAB
     Indication: COLITIS ULCERATIVE
     Route: 042
  4. MESALAMINE. [Concomitant]
     Active Substance: MESALAMINE
     Dosage: AS REQUIRED
     Route: 065

REACTIONS (3)
  - Condition aggravated [Unknown]
  - Haematochezia [Unknown]
  - Fatigue [Unknown]
